FAERS Safety Report 12853637 (Version 1)
Quarter: 2016Q4

REPORT INFORMATION
  Report Type: Spontaneous
  Country: NL (occurrence: NL)
  Receive Date: 20161017
  Receipt Date: 20161017
  Transmission Date: 20170207
  Serious: Yes (Other)
  Sender: FDA-Public Use
  Company Number: NL-TEVA-701662ACC

PATIENT
  Age: 74 Year
  Sex: Female

DRUGS (1)
  1. METHOTREXAAT INJVLST 10MG/ML [Suspect]
     Active Substance: METHOTREXATE
     Indication: RHEUMATOID ARTHRITIS
     Dosage: 15 MG ONCE WEEKLY
     Route: 058
     Dates: start: 20160607, end: 20160829

REACTIONS (2)
  - Subcutaneous haematoma [None]
  - Haematoma [Not Recovered/Not Resolved]

NARRATIVE: CASE EVENT DATE: 20160829
